FAERS Safety Report 23072719 (Version 1)
Quarter: 2023Q4

REPORT INFORMATION
  Report Type: Spontaneous
  Country: US (occurrence: US)
  Receive Date: 20231017
  Receipt Date: 20231017
  Transmission Date: 20240109
  Serious: No
  Sender: FDA-Public Use
  Company Number: US-PADAGIS-2023PAD01451

PATIENT

DRUGS (1)
  1. MUPIROCIN [Suspect]
     Active Substance: MUPIROCIN
     Indication: Infection
     Dosage: UNK, BID
     Route: 061
     Dates: start: 20231003

REACTIONS (7)
  - Frequent bowel movements [Unknown]
  - Abdominal pain [Unknown]
  - Application site exfoliation [Unknown]
  - Application site pruritus [Unknown]
  - Application site dryness [Unknown]
  - Inappropriate schedule of product administration [Unknown]
  - Product use in unapproved indication [Unknown]

NARRATIVE: CASE EVENT DATE: 20231003
